FAERS Safety Report 6061519-3 (Version None)
Quarter: 2009Q1

REPORT INFORMATION
  Report Type: 
  Country: None (occurrence: None)
  Receive Date: 20090202
  Receipt Date: 20090121
  Transmission Date: 20090719
  Serious: Yes (Other)
  Sender: FDA-Public Use
  Company Number: BE-ROCHE-610380

PATIENT
  Age: 19 Year
  Sex: Male
  Weight: 75 kg

DRUGS (3)
  1. ISOTRETINOIN [Suspect]
     Indication: ACNE
     Route: 048
     Dates: start: 20060601, end: 20060701
  2. ISOTRETINOIN [Suspect]
     Route: 048
     Dates: start: 20070901, end: 20071101
  3. ISOTRETINOIN [Suspect]
     Route: 048
     Dates: start: 20071101, end: 20080301

REACTIONS (4)
  - DEPRESSED MOOD [None]
  - DISTURBANCE IN ATTENTION [None]
  - FATIGUE [None]
  - LIP DRY [None]
